FAERS Safety Report 4415181-3 (Version None)
Quarter: 2004Q3

REPORT INFORMATION
  Report Type: 
  Country: None (occurrence: None)
  Receive Date: 20040730
  Receipt Date: 20040720
  Transmission Date: 20050211
  Serious: Yes (Other)
  Sender: FDA-Public Use
  Company Number: K200401091

PATIENT
  Age: 18 Year
  Sex: Female

DRUGS (1)
  1. NORDETTE-21 [Suspect]
     Indication: ORAL CONTRACEPTION
     Dosage: 1 TABLET, QD, ORAL
     Route: 048
     Dates: start: 20040706

REACTIONS (4)
  - ABDOMINAL PAIN [None]
  - DYSMENORRHOEA [None]
  - MENORRHAGIA [None]
  - VAGINAL HAEMORRHAGE [None]
